FAERS Safety Report 10764504 (Version 1)
Quarter: 2015Q1

REPORT INFORMATION
  Report Type: Spontaneous
  Country: BR (occurrence: BR)
  Receive Date: 20150205
  Receipt Date: 20150205
  Transmission Date: 20150721
  Serious: Yes (Other)
  Sender: FDA-Public Use
  Company Number: BR-ABBVIE-15K-020-1340753-00

PATIENT
  Age: 40 Year
  Sex: Female
  Weight: 70 kg

DRUGS (3)
  1. HUMIRA [Suspect]
     Active Substance: ADALIMUMAB
     Indication: PSORIASIS
     Route: 058
     Dates: start: 20100107
  2. DICLOFENAC [Suspect]
     Active Substance: DICLOFENAC
     Indication: SURGERY
     Route: 048
     Dates: start: 20141211, end: 20141213
  3. MELOXICAM/CODEINE/FAMOTIDINE/PARACETAMOL/PREDNISONE(MAGISTRAL FORMULA) [Concomitant]
     Indication: RHEUMATOID ARTHRITIS
     Route: 048
     Dates: start: 2012

REACTIONS (10)
  - Milk allergy [Not Recovered/Not Resolved]
  - Diarrhoea [Recovered/Resolved]
  - Injection site haematoma [Not Recovered/Not Resolved]
  - Injection site mass [Not Recovered/Not Resolved]
  - Gastrointestinal bacterial infection [Not Recovered/Not Resolved]
  - Rheumatoid arthritis [Unknown]
  - Carpal tunnel syndrome [Not Recovered/Not Resolved]
  - Tendonitis [Not Recovered/Not Resolved]
  - Tendon disorder [Not Recovered/Not Resolved]
  - Injection site swelling [Not Recovered/Not Resolved]

NARRATIVE: CASE EVENT DATE: 2012
